FAERS Safety Report 8956752 (Version 1)
Quarter: 2012Q4

REPORT INFORMATION
  Report Type: 
  Country: CA (occurrence: CA)
  Receive Date: 20121211
  Receipt Date: 20121211
  Transmission Date: 20130627
  Serious: Yes (Death, Life-Threatening, Other)
  Sender: FDA-Public Use
  Company Number: CA-AMGEN-CANSP2012078171

PATIENT
  Age: 78 Year
  Sex: Male
  Weight: 31 kg

DRUGS (2)
  1. ENBREL [Suspect]
     Indication: PRODUCT USED FOR UNKNOWN INDICATION
     Dosage: UNK
  2. STELARA [Suspect]
     Dosage: UNK
     Route: 058

REACTIONS (1)
  - Pancreatic carcinoma metastatic [Fatal]
